FAERS Safety Report 17601084 (Version 1)
Quarter: 2020Q1

REPORT INFORMATION
  Report Type: Spontaneous
  Country: US (occurrence: US)
  Receive Date: 20200330
  Receipt Date: 20200330
  Transmission Date: 20200409
  Serious: No
  Sender: FDA-Public Use
  Company Number: US-GALDERMA-US19067724

PATIENT
  Sex: Female

DRUGS (1)
  1. DIFFERIN GEL [Suspect]
     Active Substance: ADAPALENE
     Indication: PRODUCT USED FOR UNKNOWN INDICATION
     Dosage: 0.1%
     Route: 061
     Dates: start: 201910

REACTIONS (6)
  - Skin discomfort [Unknown]
  - Inappropriate schedule of product administration [Recovered/Resolved]
  - Eye swelling [Unknown]
  - Underdose [Recovered/Resolved]
  - Rash [Unknown]
  - Pain of skin [Unknown]

NARRATIVE: CASE EVENT DATE: 201910
